FAERS Safety Report 5802872-2 (Version None)
Quarter: 2008Q3

REPORT INFORMATION
  Report Type: 
  Country: None (occurrence: None)
  Receive Date: 20080702
  Receipt Date: 20080618
  Transmission Date: 20090109
  Serious: Yes (Other)
  Sender: FDA-Public Use
  Company Number: A-US2008-20969

PATIENT
  Sex: Male

DRUGS (1)
  1. TRACLEER [Suspect]
     Dosage: INTRA-UTERINE
     Route: 015

REACTIONS (2)
  - CAESAREAN SECTION [None]
  - MATERNAL DRUGS AFFECTING FOETUS [None]
